FAERS Safety Report 4357388-X (Version None)
Quarter: 2004Q2

REPORT INFORMATION
  Report Type: 
  Country: None (occurrence: None)
  Receive Date: 20040507
  Receipt Date: 20020315
  Transmission Date: 20050107
  Serious: Yes (Other)
  Sender: FDA-Public Use
  Company Number: 2002-BP-01087BP

PATIENT
  Age: 68 Year
  Sex: Male

DRUGS (6)
  1. TELMISARTAN TABLETS (TA) (TELMISARTAN) [Suspect]
     Indication: CEREBROVASCULAR ACCIDENT PROPHYLAXIS
     Dosage: PO
     Route: 048
  2. TELMISARTAN TABLETS (TA) (TELMISARTAN) [Suspect]
     Indication: MYOCARDIAL INFARCTION
     Dosage: PO
     Route: 048
  3. TELMISARTAN TABLETS (TA) (TELMISARTAN) [Suspect]
     Indication: PROPHYLAXIS
     Dosage: PO
     Route: 048
  4. RAMIPRIL [Suspect]
     Indication: CEREBROVASCULAR ACCIDENT PROPHYLAXIS
     Dosage: PO
     Route: 048
  5. RAMIPRIL [Suspect]
     Indication: MYOCARDIAL INFARCTION
     Dosage: PO
     Route: 048
  6. RAMIPRIL [Suspect]
     Indication: PROPHYLAXIS
     Dosage: PO
     Route: 048

REACTIONS (3)
  - ASTHENIA [None]
  - DIZZINESS [None]
  - SYNCOPE [None]
